FAERS Safety Report 5916810-5 (Version None)
Quarter: 2008Q4

REPORT INFORMATION
  Report Type: 
  Country: None (occurrence: None)
  Receive Date: 20081013
  Receipt Date: 20081002
  Transmission Date: 20090506
  Serious: Yes (Death)
  Sender: FDA-Public Use
  Company Number: US-PFIZER INC-2008080719

PATIENT
  Sex: Female

DRUGS (2)
  1. ZIPRASIDONE (CAPS) [Suspect]
     Route: 048
     Dates: start: 20080610, end: 20080810
  2. DEPAKOTE [Suspect]
     Indication: BIPOLAR DISORDER
     Route: 048
     Dates: start: 20080331, end: 20080731

REACTIONS (1)
  - INTRA-UTERINE DEATH [None]
